FAERS Safety Report 6379445-9 (Version None)
Quarter: 2009Q3

REPORT INFORMATION
  Report Type: 
  Country: None (occurrence: None)
  Receive Date: 20090928
  Receipt Date: 20090923
  Transmission Date: 20100115
  Serious: Yes (Death)
  Sender: FDA-Public Use
  Company Number: B0546846A

PATIENT
  Age: 5 Year
  Sex: Male

DRUGS (1)
  1. ZOFRAN [Suspect]
     Indication: VOMITING
     Route: 060
     Dates: start: 20081102

REACTIONS (11)
  - ACIDOSIS [None]
  - CARDIAC ARREST [None]
  - DEPRESSED LEVEL OF CONSCIOUSNESS [None]
  - HYPERTHERMIA [None]
  - HYPERTHERMIA MALIGNANT [None]
  - MUSCLE RIGIDITY [None]
  - PNEUMONIA [None]
  - PYREXIA [None]
  - SEROTONIN SYNDROME [None]
  - THROMBOSIS [None]
  - VENTRICULAR TACHYCARDIA [None]
